FAERS Safety Report 14193520 (Version 1)
Quarter: 2017Q4

REPORT INFORMATION
  Report Type: Spontaneous
  Country: US (occurrence: US)
  Receive Date: 20171115
  Receipt Date: 20171115
  Transmission Date: 20180321
  Serious: No
  Sender: FDA-Public Use
  Company Number: US-009507513-1711USA002606

PATIENT
  Age: 25 Year
  Sex: Female

DRUGS (2)
  1. BELSOMRA [Suspect]
     Active Substance: SUVOREXANT
     Indication: INSOMNIA
     Dosage: 10 MG, UNK
     Route: 048
  2. LITHIUM. [Concomitant]
     Active Substance: LITHIUM
     Dosage: 300 MG, UNK

REACTIONS (3)
  - Sleep disorder [Recovered/Resolved]
  - Feeling abnormal [Recovered/Resolved]
  - Crying [Recovered/Resolved]
